FAERS Safety Report 5314754-3 (Version None)
Quarter: 2007Q2

REPORT INFORMATION
  Report Type: 
  Country: None (occurrence: None)
  Receive Date: 20070426
  Receipt Date: 20070417
  Transmission Date: 20071010
  Serious: Yes (Hospitalization)
  Sender: FDA-Public Use
  Company Number: CERZ-10801

PATIENT
  Age: 64 Year
  Sex: Female
  Weight: 60.5 kg

DRUGS (1)
  1. CEREZYME [Suspect]
     Indication: GAUCHER'S DISEASE
     Dosage: 60 U/KG Q2WKS IV
     Route: 042
     Dates: start: 19970302

REACTIONS (2)
  - ARTHRALGIA [None]
  - OSTEONECROSIS [None]
